FAERS Safety Report 9455662 (Version 2)
Quarter: 2013Q4

REPORT INFORMATION
  Report Type: Spontaneous
  Country: CL (occurrence: CL)
  Receive Date: 20130813
  Receipt Date: 20131002
  Transmission Date: 20140711
  Serious: Yes (Other)
  Sender: FDA-Public Use
  Company Number: CL-NOVOPROD-384622

PATIENT
  Age: 15 Year
  Sex: Male

DRUGS (2)
  1. NORDITROPIN NORDILET [Suspect]
     Indication: GROWTH HORMONE DEFICIENCY
     Dosage: 6 IU, QD
     Route: 058
     Dates: start: 20120812, end: 20130801
  2. NORDITROPIN NORDILET [Suspect]
     Dosage: UNK
     Route: 058

REACTIONS (2)
  - Loss of consciousness [Recovered/Resolved]
  - Rash [Recovered/Resolved]
